FAERS Safety Report 16651990 (Version 1)
Quarter: 2019Q3

REPORT INFORMATION
  Report Type: Spontaneous
  Country: GB (occurrence: GB)
  Receive Date: 20190731
  Receipt Date: 20190731
  Transmission Date: 20191004
  Serious: Yes (Other)
  Sender: FDA-Public Use
  Company Number: GB-MYLANLABS-2019M1071166

PATIENT
  Age: 84 Year
  Sex: Female

DRUGS (6)
  1. METFORMIN [Concomitant]
     Active Substance: METFORMIN HYDROCHLORIDE
     Indication: DIABETES MELLITUS
  2. GLICLAZIDE [Concomitant]
     Active Substance: GLICLAZIDE
     Dosage: 40MG AT NIGHT AND 80MG IN THE MORNING.
  3. ACETYLSALICYLIC ACID [Concomitant]
     Active Substance: ASPIRIN
     Dosage: WITH FOOD
  4. TRAVOPROST. [Concomitant]
     Active Substance: TRAVOPROST
     Dosage: NIGHT
     Route: 047
  5. ATORVASTATIN [Concomitant]
     Active Substance: ATORVASTATIN
     Dosage: DISCONTINUED IN CLARITHROMYCIN COURSE
  6. CLARITHROMYCIN. [Suspect]
     Active Substance: CLARITHROMYCIN
     Indication: INFECTED CYST
     Dosage: MORNING AND EVENING.
     Route: 048
     Dates: start: 20190130

REACTIONS (5)
  - Urinary tract disorder [Unknown]
  - Cyst rupture [Unknown]
  - Oral pain [Recovered/Resolved with Sequelae]
  - Haemorrhagic cyst [Unknown]
  - Dysgeusia [Recovering/Resolving]

NARRATIVE: CASE EVENT DATE: 20190131
